FAERS Safety Report 8406491-3 (Version None)
Quarter: 2012Q2

REPORT INFORMATION
  Report Type: 
  Country: None (occurrence: None)
  Receive Date: 20120604
  Receipt Date: 20120530
  Transmission Date: 20120825
  Serious: Yes (Hospitalization)
  Sender: FDA-Public Use
  Company Number: US-BAYER-2012-054582

PATIENT
  Age: 31 Year
  Sex: Female

DRUGS (4)
  1. YAZ [Suspect]
     Indication: CONTRACEPTION
  2. AZITHROMYCIN [Concomitant]
     Indication: PNEUMONIA
  3. STEROIDS [Concomitant]
     Indication: ALLERGY TO FERMENTED PRODUCTS
  4. IMITREX [Concomitant]
     Dosage: UNK UNK, PRN
     Route: 045

REACTIONS (1)
  - PULMONARY EMBOLISM [None]
